FAERS Safety Report 9971561 (Version 2)
Quarter: 2014Q1

REPORT INFORMATION
  Report Type: Report from Study
  Country: US (occurrence: US)
  Receive Date: 20140306
  Receipt Date: 20140306
  Transmission Date: 20141002
  Serious: Yes (Hospitalization)
  Sender: FDA-Public Use
  Company Number: US-ABBVIE-13P-163-1133786-00

PATIENT
  Sex: Female
  Weight: 103.51 kg

DRUGS (2)
  1. HUMIRA [Suspect]
     Indication: COLITIS ULCERATIVE
     Dosage: 4 SHOTS DAY 1
     Route: 058
     Dates: start: 20130801
  2. HUMIRA [Suspect]
     Dates: start: 20130916

REACTIONS (1)
  - Diarrhoea infectious [Recovered/Resolved]
